FAERS Safety Report 8985188 (Version 1)
Quarter: 2012Q4

REPORT INFORMATION
  Report Type: 
  Country: US (occurrence: US)
  Receive Date: 20121226
  Receipt Date: 20121226
  Transmission Date: 20130627
  Serious: No
  Sender: FDA-Public Use
  Company Number: US-PFIZER INC-2012326912

PATIENT
  Age: 57 Year
  Sex: Female
  Weight: 65.76 kg

DRUGS (3)
  1. ACCURETIC [Suspect]
     Indication: DIABETES
     Dosage: 40 mg, daily
     Dates: start: 2012
  2. ACCUPRIL [Suspect]
     Indication: BLOOD PRESSURE HIGH
     Dosage: 40 mg, daily
     Dates: start: 2012
  3. METFORMIN [Concomitant]
     Indication: DIABETES
     Dosage: 1000 mg, 2x/day

REACTIONS (1)
  - Nasopharyngitis [Recovering/Resolving]
